FAERS Safety Report 19476815 (Version 1)
Quarter: 2021Q2

REPORT INFORMATION
  Report Type: Spontaneous
  Country: US (occurrence: US)
  Receive Date: 20210629
  Receipt Date: 20210629
  Transmission Date: 20210717
  Serious: Yes (Other)
  Sender: FDA-Public Use
  Company Number: None

PATIENT
  Sex: Female

DRUGS (1)
  1. BUPIVACAINE SPINAL [Suspect]
     Active Substance: BUPIVACAINE
     Route: 037

REACTIONS (1)
  - Inadequate analgesia [None]

NARRATIVE: CASE EVENT DATE: 20210628
